FAERS Safety Report 7658242-8 (Version None)
Quarter: 2011Q3

REPORT INFORMATION
  Report Type: 
  Country: None (occurrence: None)
  Receive Date: 20110803
  Receipt Date: 20110803
  Transmission Date: 20111222
  Serious: Yes (Other)
  Sender: FDA-Public Use
  Company Number: None

PATIENT
  Sex: Female

DRUGS (1)
  1. VENLAFAXINE HYDROCHLORIDE [Suspect]
     Indication: DEPRESSION
     Dosage: 150MG PO QD PO
     Route: 048
     Dates: start: 20110101

REACTIONS (3)
  - PRODUCT SUBSTITUTION ISSUE [None]
  - ANXIETY [None]
  - DEPRESSION [None]
